FAERS Safety Report 23153406 (Version 3)
Quarter: 2023Q4

REPORT INFORMATION
  Report Type: Report from Study
  Country: IL (occurrence: IL)
  Receive Date: 20231107
  Receipt Date: 20231203
  Transmission Date: 20240110
  Serious: Yes (Other)
  Sender: FDA-Public Use
  Company Number: IL-002147023-NVSC2023IL009035

PATIENT
  Sex: Male

DRUGS (2)
  1. MEKINIST [Suspect]
     Active Substance: TRAMETINIB DIMETHYL SULFOXIDE
     Indication: Glioma
     Dosage: 1.5 MG, QD
     Route: 048
     Dates: start: 20220404, end: 202305
  2. MEKINIST [Suspect]
     Active Substance: TRAMETINIB DIMETHYL SULFOXIDE
     Indication: Astrocytoma
     Dosage: 2 MG D/T
     Route: 048
     Dates: start: 202308, end: 202309

REACTIONS (5)
  - Astrocytoma [Unknown]
  - Malignant neoplasm progression [Unknown]
  - Localised infection [Recovered/Resolved]
  - Skin toxicity [Recovered/Resolved]
  - Abnormal weight gain [Recovered/Resolved]

NARRATIVE: CASE EVENT DATE: 20230501
